FAERS Safety Report 12978540 (Version 1)
Quarter: 2016Q4

REPORT INFORMATION
  Report Type: Spontaneous
  Country: US (occurrence: US)
  Receive Date: 20161123
  Receipt Date: 20161123
  Transmission Date: 20170207
  Serious: Yes (Hospitalization)
  Sender: FDA-Public Use
  Company Number: None

PATIENT
  Age: 68 Year
  Sex: Female

DRUGS (1)
  1. OPSUMIT [Suspect]
     Active Substance: MACITENTAN
     Indication: PULMONARY EMBOLISM
     Route: 048
     Dates: start: 20160303

REACTIONS (6)
  - Hypertensive emergency [None]
  - Hallucination [None]
  - Delirium [None]
  - Cognitive disorder [None]
  - Mental status changes [None]
  - Confusional state [None]

NARRATIVE: CASE EVENT DATE: 20161122
